FAERS Safety Report 5018009-6 (Version None)
Quarter: 2006Q2

REPORT INFORMATION
  Report Type: 
  Country: None (occurrence: None)
  Receive Date: 20060530
  Receipt Date: 20050120
  Transmission Date: 20061013
  Serious: Yes (Hospitalization)
  Sender: FDA-Public Use
  Company Number: 2005018595

PATIENT
  Age: 74 Year
  Sex: Male

DRUGS (2)
  1. LYRICA [Suspect]
     Indication: PAIN IN EXTREMITY
     Dosage: (75 MG), ORAL
     Route: 048
     Dates: start: 20041007, end: 20041022
  2. CARBAMAZEPINE [Concomitant]

REACTIONS (6)
  - ASTHENIA [None]
  - CONFUSIONAL STATE [None]
  - COORDINATION ABNORMAL [None]
  - FALL [None]
  - SKIN INFECTION [None]
  - SOMNOLENCE [None]
